FAERS Safety Report 15184049 (Version 1)
Quarter: 2018Q3

REPORT INFORMATION
  Report Type: Spontaneous
  Country: US (occurrence: US)
  Receive Date: 20180723
  Receipt Date: 20180723
  Transmission Date: 20181010
  Serious: Yes (Other)
  Sender: FDA-Public Use
  Company Number: US-INDIVIOR LIMITED-INDV-112625-2018

PATIENT
  Age: 32 Year
  Sex: Female

DRUGS (3)
  1. SUBOXONE [Suspect]
     Active Substance: BUPRENORPHINE HYDROCHLORIDE\NALOXONE HYDROCHLORIDE
     Dosage: ONLY TAKES HALF OF ONE
     Route: 065
  2. SUBOXONE [Suspect]
     Active Substance: BUPRENORPHINE HYDROCHLORIDE\NALOXONE HYDROCHLORIDE
     Indication: DRUG DEPENDENCE
     Dosage: TWO STRIPS A DAY
     Route: 065
  3. SUBOXONE [Suspect]
     Active Substance: BUPRENORPHINE HYDROCHLORIDE\NALOXONE HYDROCHLORIDE
     Dosage: TAKES MORE THAN HALF AND TAKES THEM ON AS NEEDED BASIS
     Route: 065

REACTIONS (7)
  - Anxiety [Unknown]
  - Drug dependence [Unknown]
  - Wrong technique in product usage process [Unknown]
  - Facial bones fracture [Unknown]
  - Victim of crime [Unknown]
  - Intentional underdose [Unknown]
  - Feeling abnormal [Unknown]
